FAERS Safety Report 25523527 (Version 1)
Quarter: 2025Q3

REPORT INFORMATION
  Report Type: Spontaneous
  Country: CN (occurrence: None)
  Receive Date: 20250707
  Receipt Date: 20250707
  Transmission Date: 20251021
  Serious: Yes (Hospitalization)
  Sender: ENCUBE ETHICALS
  Company Number: CN-Encube-002021

PATIENT
  Age: 57 Year
  Sex: Male

DRUGS (2)
  1. METRONIDAZOLE [Suspect]
     Active Substance: METRONIDAZOLE
     Indication: Sinusitis
     Dosage: FOR 20 DAYS
     Route: 048
  2. LEVOFLOXACIN [Concomitant]
     Active Substance: LEVOFLOXACIN
     Indication: Sinusitis

REACTIONS (3)
  - Toxic encephalopathy [Recovering/Resolving]
  - Off label use [Unknown]
  - Toxicity to various agents [Recovering/Resolving]
